FAERS Safety Report 15472799 (Version 1)
Quarter: 2018Q4

REPORT INFORMATION
  Report Type: Spontaneous
  Country: US (occurrence: US)
  Receive Date: 20181008
  Receipt Date: 20181008
  Transmission Date: 20190205
  Serious: No
  Sender: FDA-Public Use
  Company Number: US-PFIZER INC-2018401541

PATIENT
  Age: 53 Year
  Sex: Female
  Weight: 104.33 kg

DRUGS (2)
  1. PREGABALIN. [Suspect]
     Active Substance: PREGABALIN
     Dosage: 75 MG, 3X/DAY (75MG CAPSULES STARTED WITH 1 CAPSULE AND THEN UP TO FINALLY 3 TIMES A DAY BY MOUTH)
     Route: 048
  2. PREGABALIN. [Suspect]
     Active Substance: PREGABALIN
     Indication: FIBROMYALGIA
     Dosage: 75 MG, 1X/DAY (75MG CAPSULES STARTED WITH 1 CAPSULE AND THEN UP TO FINALLY 3 TIMES A DAY BY MOUTH)
     Route: 048

REACTIONS (1)
  - Drug ineffective [Unknown]
